FAERS Safety Report 22537367 (Version 1)
Quarter: 2023Q2

REPORT INFORMATION
  Report Type: Spontaneous
  Country: US (occurrence: None)
  Receive Date: 20230607
  Receipt Date: 20230607
  Transmission Date: 20230722
  Serious: Yes (Other)
  Sender: FDA-Public Use
  Company Number: None

PATIENT
  Age: 64 Year
  Sex: Female

DRUGS (16)
  1. HUMIRA [Suspect]
     Active Substance: ADALIMUMAB
     Indication: Rheumatoid arthritis
     Dosage: OTHER FREQUENCY : ONCE PER WEEK;?
     Route: 058
     Dates: start: 20220504
  2. LISINOPRIL [Concomitant]
     Active Substance: LISINOPRIL
  3. CLARITIN [Concomitant]
     Active Substance: LORATADINE
  4. PRAVASTATIN [Concomitant]
     Active Substance: PRAVASTATIN
  5. HYDROCHLOROTHIAZIDE [Concomitant]
     Active Substance: HYDROCHLOROTHIAZIDE
  6. ZETIA [Concomitant]
     Active Substance: EZETIMIBE
  7. AMLODIPINE BESYLATE [Concomitant]
     Active Substance: AMLODIPINE BESYLATE
  8. Sinulair [Concomitant]
  9. ASPIRIN [Concomitant]
     Active Substance: ASPIRIN
  10. CYANOCOBALAMIN [Concomitant]
     Active Substance: CYANOCOBALAMIN
  11. VITAMIN D3 [Concomitant]
     Active Substance: CHOLECALCIFEROL
  12. METFORMIN [Concomitant]
     Active Substance: METFORMIN HYDROCHLORIDE
  13. OZEMPIC [Concomitant]
     Active Substance: SEMAGLUTIDE
  14. LASIX [Concomitant]
     Active Substance: FUROSEMIDE
  15. POTASSIUM [Concomitant]
     Active Substance: POTASSIUM
  16. GABAPENTIN [Concomitant]
     Active Substance: GABAPENTIN

REACTIONS (2)
  - Surgery [None]
  - Intentional dose omission [None]

NARRATIVE: CASE EVENT DATE: 20230603
